FAERS Safety Report 13280777 (Version 2)
Quarter: 2017Q2

REPORT INFORMATION
  Report Type: Spontaneous
  Country: FR (occurrence: FR)
  Receive Date: 20170301
  Receipt Date: 20170415
  Transmission Date: 20170830
  Serious: Yes (Other)
  Sender: FDA-Public Use
  Company Number: FR-SUN PHARMACEUTICAL INDUSTRIES LTD-2017R1-134550

PATIENT
  Age: 76 Year
  Sex: Male

DRUGS (3)
  1. RIFAMPICIN [Interacting]
     Active Substance: RIFAMPIN
     Indication: INTERVERTEBRAL DISCITIS
     Dosage: 900 MG, DAILY
     Route: 048
  2. CLINDAMYCIN. [Suspect]
     Active Substance: CLINDAMYCIN
     Indication: INTERVERTEBRAL DISCITIS
     Dosage: 600 MG, QID
     Route: 048
  3. CLOXACILLIN [Concomitant]
     Active Substance: CLOXACILLIN
     Indication: INTERVERTEBRAL DISCITIS
     Dosage: 12 G, DAILY
     Route: 065

REACTIONS (2)
  - Drug interaction [Unknown]
  - Underdose [Unknown]
